FAERS Safety Report 16529280 (Version 1)
Quarter: 2019Q3

REPORT INFORMATION
  Report Type: Spontaneous
  Country: PL (occurrence: PL)
  Receive Date: 20190704
  Receipt Date: 20190704
  Transmission Date: 20191004
  Serious: Yes (Other)
  Sender: FDA-Public Use
  Company Number: PHHY2019PL151800

PATIENT
  Age: 45 Year
  Sex: Male

DRUGS (1)
  1. NILOTINIB [Suspect]
     Active Substance: NILOTINIB
     Indication: CHRONIC MYELOID LEUKAEMIA
     Dosage: 400 MG, BID
     Route: 065
     Dates: start: 201104

REACTIONS (6)
  - Chest pain [Recovered/Resolved]
  - Hypercholesterolaemia [Unknown]
  - Hypertension [Unknown]
  - Myocardial ischaemia [Unknown]
  - Acute coronary syndrome [Unknown]
  - Angina unstable [Unknown]

NARRATIVE: CASE EVENT DATE: 201408
